FAERS Safety Report 6517679-0 (Version None)
Quarter: 2009Q4

REPORT INFORMATION
  Report Type: 
  Country: None (occurrence: None)
  Receive Date: 20091224
  Receipt Date: 20091223
  Transmission Date: 20100525
  Serious: Yes (Other)
  Sender: FDA-Public Use
  Company Number: US-ASTRAZENECA-2009UW03038

PATIENT
  Age: 9535 Day
  Sex: Male
  Weight: 86.2 kg

DRUGS (12)
  1. SEROQUEL [Suspect]
     Dosage: PRN, 25 TO 100 MG BID
     Route: 048
     Dates: start: 20041123, end: 20041123
  2. SEROQUEL [Suspect]
     Route: 048
  3. SEROQUEL [Suspect]
     Route: 048
     Dates: start: 20050219
  4. PAXIL [Concomitant]
     Dates: start: 20041123, end: 20050103
  5. ATIVAN [Concomitant]
  6. CYMBALTA [Concomitant]
  7. TRAZODONE HCL [Concomitant]
  8. RISPERDAL [Concomitant]
  9. LEXAPRO [Concomitant]
  10. KLONOPIN [Concomitant]
     Dosage: 1 MG, 2 MG
     Dates: start: 20041230
  11. XANAX [Concomitant]
     Dosage: 0.5 MG, 1MG
     Dates: start: 20050219
  12. XANAX [Concomitant]
     Dates: end: 20050103

REACTIONS (5)
  - CONVULSION [None]
  - DIABETES MELLITUS [None]
  - INSOMNIA [None]
  - LOSS OF CONSCIOUSNESS [None]
  - SUICIDAL IDEATION [None]
